FAERS Safety Report 7826596-5 (Version None)
Quarter: 2011Q4

REPORT INFORMATION
  Report Type: 
  Country: None (occurrence: None)
  Receive Date: 20111020
  Receipt Date: 20111010
  Transmission Date: 20120403
  Serious: Yes (Hospitalization, Other)
  Sender: FDA-Public Use
  Company Number: US-JNJFOC-20111004762

PATIENT
  Sex: Female
  Weight: 123.38 kg

DRUGS (2)
  1. DURAGESIC-100 [Suspect]
     Route: 062
     Dates: start: 20090101
  2. DURAGESIC-100 [Suspect]
     Indication: PAIN
     Route: 062
     Dates: start: 20010101, end: 20090101

REACTIONS (14)
  - JOINT INJURY [None]
  - ROTATOR CUFF REPAIR [None]
  - PHYSICAL ASSAULT [None]
  - SKIN DISORDER [None]
  - NECK INJURY [None]
  - SLEEP DISORDER [None]
  - SKELETAL INJURY [None]
  - ROTATOR CUFF SYNDROME [None]
  - FALL [None]
  - CONTUSION [None]
  - THROMBOSIS [None]
  - PRODUCT QUALITY ISSUE [None]
  - SINUSITIS [None]
  - INAPPROPRIATE SCHEDULE OF DRUG ADMINISTRATION [None]
